FAERS Safety Report 25865626 (Version 1)
Quarter: 2025Q3

REPORT INFORMATION
  Report Type: Spontaneous
  Country: US (occurrence: US)
  Receive Date: 20250930
  Receipt Date: 20250930
  Transmission Date: 20251020
  Serious: No
  Sender: SANOFI AVENTIS
  Company Number: US-SA-2025SA291540

PATIENT
  Sex: Female

DRUGS (3)
  1. DUPIXENT [Suspect]
     Active Substance: DUPILUMAB
     Indication: Asthma
     Dosage: 300 MG, QOW
     Route: 058
     Dates: start: 20241025
  2. ASPIRIN [Concomitant]
     Active Substance: ASPIRIN
  3. Adult multivitamin [Concomitant]

REACTIONS (2)
  - Asthma [Unknown]
  - Drug ineffective [Unknown]
